FAERS Safety Report 4359931-3 (Version None)
Quarter: 2004Q2

REPORT INFORMATION
  Report Type: 
  Country: None (occurrence: None)
  Receive Date: 20040518
  Receipt Date: 20040514
  Transmission Date: 20050107
  Serious: Yes (Hospitalization)
  Sender: FDA-Public Use
  Company Number: FR-MERCK-0405FRA00044

PATIENT
  Age: 72 Year
  Sex: Female

DRUGS (14)
  1. AMLODIPINE BESYLATE [Concomitant]
     Indication: ANGINA PECTORIS
     Route: 048
  2. ASPIRIN LYSINE [Concomitant]
     Route: 048
  3. BISOPROLOL [Concomitant]
     Indication: CARDIAC FAILURE CONGESTIVE
     Route: 048
  4. FERROUS SULFATE [Concomitant]
     Route: 048
  5. FUROSEMIDE [Concomitant]
     Indication: RENAL FAILURE
     Route: 048
  6. FUROSEMIDE [Concomitant]
     Indication: HYPERTENSION
     Route: 048
  7. INSULIN HUMAN, ISOPHANE [Concomitant]
     Indication: DIABETES MELLITUS INSULIN-DEPENDENT
     Route: 058
  8. INSULIN, NEUTRAL [Concomitant]
     Indication: DIABETES MELLITUS INSULIN-DEPENDENT
     Route: 058
  9. NICORANDIL [Concomitant]
     Indication: ANGINA PECTORIS
     Route: 048
  10. NITROGLYCERIN [Concomitant]
     Indication: ANGINA PECTORIS
     Route: 061
  11. NOROXIN [Suspect]
     Indication: URINARY TRACT INFECTION
     Route: 048
     Dates: start: 20040220, end: 20040229
  12. OMEPRAZOLE [Concomitant]
     Route: 048
  13. POTASSIUM CHLORIDE [Concomitant]
     Route: 048
  14. SIMVASTATIN [Concomitant]
     Indication: DYSLIPIDAEMIA
     Route: 048

REACTIONS (2)
  - PYREXIA [None]
  - THROMBOCYTOPENIC PURPURA [None]
